FAERS Safety Report 23091911 (Version 2)
Quarter: 2025Q1

REPORT INFORMATION
  Report Type: Report from Study
  Country: JP (occurrence: JP)
  Receive Date: 20231021
  Receipt Date: 20250125
  Transmission Date: 20250409
  Serious: Yes (Death, Other)
  Sender: ABBVIE
  Company Number: JP-TAKEDA-2019TJP026577

PATIENT
  Age: 67 Year
  Sex: Male
  Weight: 55.2 kg

DRUGS (1)
  1. LEUPLIN [Suspect]
     Active Substance: LEUPROLIDE ACETATE
     Indication: Bulbospinal muscular atrophy congenital
     Dosage: 11.25 MILLIGRAM, Q3MONTHS
     Route: 058
     Dates: start: 20181105, end: 20220314

REACTIONS (5)
  - Death [Fatal]
  - Hepatic function abnormal [Recovering/Resolving]
  - Dyslipidaemia [Recovering/Resolving]
  - Meningitis [Unknown]
  - Hypercapnia [Unknown]

NARRATIVE: CASE EVENT DATE: 20191021
